FAERS Safety Report 6407564-7 (Version None)
Quarter: 2009Q4

REPORT INFORMATION
  Report Type: 
  Country: None (occurrence: None)
  Receive Date: 20091015
  Receipt Date: 20091006
  Transmission Date: 20100525
  Serious: Yes (Death)
  Sender: FDA-Public Use
  Company Number: 2009SP022519

PATIENT
  Age: 80 Year
  Sex: Male

DRUGS (4)
  1. INTEGRILIN [Suspect]
     Indication: MYOCARDIAL INFARCTION
     Dosage: 1 DF; 1 DF;
     Dates: start: 20090808, end: 20090809
  2. INTEGRILIN [Suspect]
     Indication: MYOCARDIAL INFARCTION
     Dosage: 1 DF; 1 DF;
     Dates: start: 20090813, end: 20090814
  3. ASS (CON.) [Concomitant]
  4. PLAVIX (CON.) [Concomitant]

REACTIONS (3)
  - CARDIAC FAILURE [None]
  - CIRCULATORY COLLAPSE [None]
  - THROMBOCYTOPENIA [None]
